FAERS Safety Report 5627648-0 (Version None)
Quarter: 2008Q1

REPORT INFORMATION
  Report Type: 
  Country: None (occurrence: None)
  Receive Date: 20080214
  Receipt Date: 20080214
  Transmission Date: 20080703
  Serious: Yes (Disabling)
  Sender: FDA-Public Use
  Company Number: None

PATIENT
  Age: 71 Year
  Sex: Male
  Weight: 70.7611 kg

DRUGS (1)
  1. LISINOPRIL [Suspect]
     Indication: HYPERTENSION
     Dosage: ONE TABLET DAILY
     Dates: start: 20080102, end: 20080211

REACTIONS (8)
  - CHILLS [None]
  - DIARRHOEA [None]
  - FATIGUE [None]
  - POLLAKIURIA [None]
  - PRURITUS [None]
  - RENAL FUNCTION TEST ABNORMAL [None]
  - URINARY TRACT INFECTION [None]
  - URINE OUTPUT DECREASED [None]
